FAERS Safety Report 14019498 (Version 2)
Quarter: 2017Q3

REPORT INFORMATION
  Report Type: Spontaneous
  Country: US (occurrence: US)
  Receive Date: 20170928
  Receipt Date: 20170928
  Transmission Date: 20171128
  Serious: Yes (Hospitalization)
  Sender: FDA-Public Use
  Company Number: US-CIPLA (EU) LIMITED-APC201006-000406

PATIENT

DRUGS (3)
  1. LAMOTRIGINE. [Suspect]
     Active Substance: LAMOTRIGINE
     Dosage: UP TO 4 GRAMS
     Route: 048
  2. AMPHETAMINE [Suspect]
     Active Substance: AMPHETAMINE
     Dosage: UNK
     Route: 048
  3. BUPROPION. [Suspect]
     Active Substance: BUPROPION
     Dosage: UP TO 7.95 GRAMS
     Route: 048

REACTIONS (8)
  - Intentional overdose [Unknown]
  - Generalised tonic-clonic seizure [Recovering/Resolving]
  - Pulmonary oedema [Unknown]
  - Brain injury [Unknown]
  - Ventricular fibrillation [Unknown]
  - Pulseless electrical activity [Unknown]
  - Circulatory collapse [Unknown]
  - Suicidal ideation [Unknown]
